FAERS Safety Report 8347421-2 (Version None)
Quarter: 2012Q2

REPORT INFORMATION
  Report Type: 
  Country: None (occurrence: None)
  Receive Date: 20120509
  Receipt Date: 20120503
  Transmission Date: 20120825
  Serious: Yes (Death, Hospitalization, Other)
  Sender: FDA-Public Use
  Company Number: US-AMGEN-QUU407493

PATIENT
  Age: 75 Year
  Sex: Male
  Weight: 72.109 kg

DRUGS (12)
  1. IMURAN [Concomitant]
     Dosage: 50 MG, UNK
     Route: 048
  2. GLIPIZIDE [Concomitant]
  3. METOPROLOL TARTRATE [Concomitant]
  4. NOVOLOG [Concomitant]
  5. NPLATE [Suspect]
     Indication: IDIOPATHIC THROMBOCYTOPENIC PURPURA
     Dosage: 350 MUG, UNK
     Route: 058
     Dates: start: 20090818, end: 20100304
  6. POTASSIUM CHLORIDE [Concomitant]
  7. PRILOSEC [Concomitant]
  8. LISINOPRIL [Concomitant]
  9. ASPIRIN [Concomitant]
     Dosage: 81 MG, UNK
  10. PREDNISONE TAB [Concomitant]
     Indication: PLATELET COUNT DECREASED
     Dosage: 20 MG, UNK
     Route: 048
  11. COUMADIN [Concomitant]
  12. METFORMIN HCL [Concomitant]

REACTIONS (5)
  - THERAPEUTIC RESPONSE DECREASED [None]
  - DEATH [None]
  - RECTAL HAEMORRHAGE [None]
  - PANCREATIC CARCINOMA [None]
  - THROMBOCYTOPENIA [None]
